FAERS Safety Report 7503859-4 (Version None)
Quarter: 2011Q2

REPORT INFORMATION
  Report Type: 
  Country: None (occurrence: None)
  Receive Date: 20110525
  Receipt Date: 20110517
  Transmission Date: 20111010
  Serious: Yes (Hospitalization)
  Sender: FDA-Public Use
  Company Number: RO-SP-2011-02896

PATIENT
  Sex: Female
  Weight: 99 kg

DRUGS (1)
  1. IMMUCYST [Suspect]
     Indication: BLADDER CANCER
     Dosage: NOT REPORTED
     Route: 043
     Dates: start: 20100528, end: 20100626

REACTIONS (8)
  - BOVINE TUBERCULOSIS [None]
  - PYREXIA [None]
  - ASTHENIA [None]
  - DECREASED APPETITE [None]
  - CHILLS [None]
  - HYPERHIDROSIS [None]
  - BLADDER IRRITATION [None]
  - BLADDER PAIN [None]
